FAERS Safety Report 7334614-6 (Version None)
Quarter: 2011Q1

REPORT INFORMATION
  Report Type: 
  Country: None (occurrence: None)
  Receive Date: 20110307
  Receipt Date: 20110222
  Transmission Date: 20110831
  Serious: Yes (Hospitalization, Other)
  Sender: FDA-Public Use
  Company Number: US-ELI_LILLY_AND_COMPANY-US201102006903

PATIENT
  Sex: Female

DRUGS (3)
  1. HUMALOG [Suspect]
     Indication: TYPE 2 DIABETES MELLITUS
     Dosage: UNK, AS NEEDED
     Dates: start: 20100401
  2. HUMALOG [Suspect]
     Dosage: UNK, AS NEEDED
     Dates: start: 20070101, end: 20100401
  3. LANTUS [Concomitant]
     Dosage: 35 U, UNK

REACTIONS (9)
  - VISUAL IMPAIRMENT [None]
  - ALEXIA [None]
  - MEMORY IMPAIRMENT [None]
  - GLYCOSYLATED HAEMOGLOBIN INCREASED [None]
  - CEREBRAL ARTERY EMBOLISM [None]
  - COGNITIVE DISORDER [None]
  - ARRHYTHMIA [None]
  - CEREBROVASCULAR ACCIDENT [None]
  - VISUAL FIELD DEFECT [None]
